FAERS Safety Report 15058555 (Version 1)
Quarter: 2018Q2

REPORT INFORMATION
  Report Type: Spontaneous
  Country: KR (occurrence: KR)
  Receive Date: 20180625
  Receipt Date: 20180625
  Transmission Date: 20180711
  Serious: Yes (Hospitalization)
  Sender: FDA-Public Use
  Company Number: KR-TEVA-2018-KR-913725

PATIENT
  Age: 67 Year
  Sex: Male

DRUGS (4)
  1. CISPLATIN. [Suspect]
     Active Substance: CISPLATIN
     Dosage: EMULSION INFUSION
     Route: 013
  2. LIPIODOL [Suspect]
     Active Substance: ETHIODIZED OIL
     Indication: TRANSCATHETER ARTERIAL CHEMOEMBOLISATION
     Dosage: INFUSION: EMULSION
     Route: 013
  3. GELFOAM [Suspect]
     Active Substance: GELATIN\THROMBIN HUMAN
     Indication: TRANSCATHETER ARTERIAL CHEMOEMBOLISATION
     Dosage: GELATIN SPONGE PARTICLES
  4. CISPLATIN. [Suspect]
     Active Substance: CISPLATIN
     Indication: TRANSCATHETER ARTERIAL CHEMOEMBOLISATION
     Dosage: CONTINUOUS INFUSION FOR 15 MINUTES
     Route: 013

REACTIONS (2)
  - Cholangitis [Recovered/Resolved]
  - Bile duct obstruction [Recovered/Resolved]
